FAERS Safety Report 7283953-6 (Version None)
Quarter: 2011Q1

REPORT INFORMATION
  Report Type: 
  Country: None (occurrence: None)
  Receive Date: 20110209
  Receipt Date: 20110131
  Transmission Date: 20110831
  Serious: Yes (Other)
  Sender: FDA-Public Use
  Company Number: PT-WATSON-2011-01340

PATIENT
  Age: 10 Year
  Sex: Male

DRUGS (1)
  1. PREDNISOLONE [Suspect]
     Indication: ASTHMA PROPHYLAXIS

REACTIONS (4)
  - URTICARIA [None]
  - VOMITING [None]
  - TYPE I HYPERSENSITIVITY [None]
  - ANGIOEDEMA [None]
